FAERS Safety Report 7988866-X (Version None)
Quarter: 2011Q4

REPORT INFORMATION
  Report Type: 
  Country: None (occurrence: None)
  Receive Date: 20111219
  Receipt Date: 20111213
  Transmission Date: 20120403
  Serious: Yes (Hospitalization)
  Sender: FDA-Public Use
  Company Number: US-JNJFOC-20111206050

PATIENT
  Sex: Female
  Weight: 98.88 kg

DRUGS (1)
  1. SIMPONI [Suspect]
     Indication: RHEUMATOID ARTHRITIS
     Route: 058
     Dates: start: 20100101

REACTIONS (5)
  - FOOT FRACTURE [None]
  - DRUG DOSE OMISSION [None]
  - HIP FRACTURE [None]
  - FALL [None]
  - DEVICE MALFUNCTION [None]
